FAERS Safety Report 19869690 (Version 2)
Quarter: 2022Q1

REPORT INFORMATION
  Report Type: Report from Study
  Country: GB (occurrence: GB)
  Receive Date: 20210922
  Receipt Date: 20220106
  Transmission Date: 20220423
  Serious: Yes (Other)
  Sender: FDA-Public Use
  Company Number: GB-SAMSUNG BIOEPIS-SB-2021-05244

PATIENT
  Age: 35 Year
  Sex: Female

DRUGS (2)
  1. IMRALDI [Suspect]
     Active Substance: ADALIMUMAB
     Indication: Crohn^s disease
     Route: 058
     Dates: start: 20210115
  2. AZATHIOPRINE [Concomitant]
     Active Substance: AZATHIOPRINE
     Indication: Product used for unknown indication
     Dosage: UNKNOWN
     Route: 065

REACTIONS (11)
  - Crohn^s disease [Unknown]
  - Fatigue [Unknown]
  - Muscle disorder [Unknown]
  - Influenza like illness [Recovered/Resolved]
  - Peripheral coldness [Not Recovered/Not Resolved]
  - Depression [Unknown]
  - Insomnia [Unknown]
  - Stress [Unknown]
  - Migraine [Unknown]
  - Constipation [Unknown]
  - Therapeutic response shortened [Unknown]

NARRATIVE: CASE EVENT DATE: 20210115
